FAERS Safety Report 5485638-5 (Version None)
Quarter: 2007Q4

REPORT INFORMATION
  Report Type: 
  Country: None (occurrence: None)
  Receive Date: 20071011
  Receipt Date: 20071003
  Transmission Date: 20080405
  Serious: Yes (Other)
  Sender: FDA-Public Use
  Company Number: 2007SP018566

PATIENT
  Age: 31 Year
  Sex: Female
  Weight: 71 kg

DRUGS (3)
  1. TEMODAL [Suspect]
     Indication: GLIOMA
     Dosage: 150 MG/M2; PO
     Route: 048
  2. EPILIM (CON.) [Concomitant]
  3. DEXAMETHASONE (CON.) [Concomitant]

REACTIONS (1)
  - NEUROPATHY PERIPHERAL [None]
